FAERS Safety Report 4302302-6 (Version None)
Quarter: 2004Q1

REPORT INFORMATION
  Report Type: 
  Country: None (occurrence: None)
  Receive Date: 20040223
  Receipt Date: 19971014
  Transmission Date: 20041129
  Serious: Yes (Hospitalization)
  Sender: FDA-Public Use
  Company Number: WAES 97032115

PATIENT
  Age: 76 Year
  Sex: Female
  Weight: 58 kg

DRUGS (6)
  1. AMLODIPINE [Concomitant]
     Dates: start: 19950401, end: 19970116
  2. ASPIRIN [Concomitant]
     Dates: start: 19950401, end: 19970116
  3. ERYTHROMYCIN ETHYLSUCCINATE [Suspect]
     Indication: CELLULITIS
     Route: 048
     Dates: start: 19961229, end: 19970116
  4. LASIX [Suspect]
     Indication: CELLULITIS
     Route: 048
     Dates: start: 19961229, end: 19970116
  5. METOPROLOL TARTRATE [Concomitant]
     Dates: start: 19950401, end: 19970116
  6. ZOCOR [Suspect]
     Indication: HYPERCHOLESTEROLAEMIA
     Route: 048
     Dates: start: 19950401, end: 19970116

REACTIONS (9)
  - ACTIVITIES OF DAILY LIVING IMPAIRED [None]
  - BLOOD URINE [None]
  - CHEST PAIN [None]
  - DEHYDRATION [None]
  - DRUG INEFFECTIVE [None]
  - MYALGIA [None]
  - ORTHOSTATIC HYPOTENSION [None]
  - PARESIS [None]
  - RHABDOMYOLYSIS [None]
